FAERS Safety Report 21613350 (Version 1)
Quarter: 2022Q4

REPORT INFORMATION
  Report Type: Report from Study
  Country: US (occurrence: US)
  Receive Date: 20221118
  Receipt Date: 20221118
  Transmission Date: 20230113
  Serious: No
  Sender: FDA-Public Use
  Company Number: US-ABBVIE-4176838

PATIENT
  Age: 79 Year
  Sex: Male

DRUGS (3)
  1. HUMIRA [Suspect]
     Active Substance: ADALIMUMAB
     Indication: Rheumatoid arthritis
     Dosage: CITRATE FREE
     Route: 058
  2. Moderna  COVID-19 vaccine [Concomitant]
     Indication: COVID-19 immunisation
     Route: 030
  3. Moderna  COVID-19 vaccine [Concomitant]
     Indication: COVID-19 immunisation
     Dosage: BOOSTER DOSE
     Route: 030

REACTIONS (4)
  - Vision blurred [Unknown]
  - Balance disorder [Unknown]
  - Joint swelling [Unknown]
  - Photophobia [Unknown]

NARRATIVE: CASE EVENT DATE: 20220901
